FAERS Safety Report 6867503-1 (Version None)
Quarter: 2010Q3

REPORT INFORMATION
  Report Type: 
  Country: None (occurrence: None)
  Receive Date: 20100722
  Receipt Date: 20100715
  Transmission Date: 20110219
  Serious: Yes (Death, Other)
  Sender: FDA-Public Use
  Company Number: ID-JNJFOC-20100705091

PATIENT
  Age: 62 Year
  Sex: Male
  Weight: 60 kg

DRUGS (1)
  1. DORIBAX [Suspect]
     Indication: PNEUMONIA
     Route: 041

REACTIONS (3)
  - ANURIA [None]
  - BRADYCARDIA [None]
  - OXYGEN SATURATION DECREASED [None]
